FAERS Safety Report 5671059-9 (Version None)
Quarter: 2008Q1

REPORT INFORMATION
  Report Type: 
  Country: None (occurrence: None)
  Receive Date: 20080318
  Receipt Date: 20080313
  Transmission Date: 20080703
  Serious: Yes (Other)
  Sender: FDA-Public Use
  Company Number: NL-ASTRAZENECA-2007AC02440

PATIENT
  Age: 11820 Day
  Sex: Female
  Weight: 80 kg

DRUGS (6)
  1. SEROQUEL XR [Suspect]
     Indication: PSYCHOTIC DISORDER
     Route: 048
     Dates: start: 20071211, end: 20071211
  2. DEPAKENE [Concomitant]
     Indication: MOOD SWINGS
  3. DEPAKENE [Concomitant]
  4. EUTHROID-1 [Concomitant]
  5. NEXIUM [Concomitant]
     Indication: DYSPEPSIA
     Route: 048
  6. PIPAMPERONE [Concomitant]
     Indication: RESTLESSNESS

REACTIONS (2)
  - DERMATITIS ALLERGIC [None]
  - RASH [None]
